FAERS Safety Report 8844606 (Version 2)
Quarter: 2013Q1

REPORT INFORMATION
  Report Type: Spontaneous
  Country: US (occurrence: None)
  Receive Date: 20121012
  Receipt Date: 20121107
  Transmission Date: 20140127
  Serious: Yes (Other)
  Sender: FDA-Public Use
  Company Number: ADR-2012-01853

PATIENT
  Sex: Female

DRUGS (2)
  1. BACLOFEN INTRATHECAL (BACLOFEN INJECTION) [Suspect]
  2. CLONIDINE [Concomitant]

REACTIONS (12)
  - Constipation [None]
  - Diarrhoea [None]
  - Cystitis [None]
  - Gastrointestinal disorder [None]
  - Obstruction gastric [None]
  - Bladder spasm [None]
  - Urinary retention [None]
  - Pollakiuria [None]
  - Ileus [None]
  - Muscle spasms [None]
  - Drug abuser [None]
  - Mental disorder [None]
